FAERS Safety Report 8358308-3 (Version None)
Quarter: 2012Q2

REPORT INFORMATION
  Report Type: 
  Country: None (occurrence: None)
  Receive Date: 20120514
  Receipt Date: 20110419
  Transmission Date: 20120825
  Serious: No
  Sender: FDA-Public Use
  Company Number: US-ALEXION-A201100562

PATIENT
  Sex: Female
  Weight: 91.8 kg

DRUGS (12)
  1. COUMADIN [Concomitant]
     Dosage: 7.5 MG 4 DAYS/WEEK
  2. FERROUS SULFATE TAB [Concomitant]
     Dosage: 325 MG, BID
  3. FOLIC ACID [Concomitant]
     Dosage: 1 MG, BID
  4. PRILOSEC [Concomitant]
     Dosage: 20 MG, BID
  5. ASTELIN [Concomitant]
     Dosage: UNK
  6. SOLIRIS [Suspect]
     Indication: PAROXYSMAL NOCTURNAL HAEMOGLOBINURIA
     Dosage: UNK
     Route: 042
  7. PHENERGAN [Concomitant]
     Indication: NAUSEA
     Dosage: 12.5 MG, QID, PRN
  8. ZYRTEC [Concomitant]
     Dosage: 10 MG, QD
  9. WARFARIN SODIUM [Concomitant]
     Indication: ANTICOAGULANT THERAPY
     Dosage: 2 MG, QD
  10. LASIX [Concomitant]
     Dosage: 40 MG, BID
  11. COUMADIN [Concomitant]
     Indication: VENOUS THROMBOSIS
     Dosage: 10 MG 3 DAYS/WEEK
  12. POTASSIUM CHLORIDE [Concomitant]
     Dosage: 40 MEQ, QD

REACTIONS (4)
  - SUTURE RELATED COMPLICATION [None]
  - POSTOPERATIVE WOUND INFECTION [None]
  - NASOPHARYNGITIS [None]
  - COUGH [None]
